FAERS Safety Report 25266302 (Version 1)
Quarter: 2025Q2

REPORT INFORMATION
  Report Type: Spontaneous
  Country: TW (occurrence: TW)
  Receive Date: 20250504
  Receipt Date: 20250504
  Transmission Date: 20250716
  Serious: Yes (Life-Threatening, Hospitalization, Other)
  Sender: RK PHARMA
  Company Number: TW-RK PHARMA, INC-20250500058

PATIENT

DRUGS (1)
  1. MITOMYCIN [Suspect]
     Active Substance: MITOMYCIN
     Indication: Transitional cell carcinoma
     Route: 043

REACTIONS (5)
  - Bladder perforation [Recovering/Resolving]
  - Septic pulmonary embolism [Unknown]
  - Urinary tract infection [Unknown]
  - Staphylococcal infection [Unknown]
  - Pancytopenia [Recovering/Resolving]
